FAERS Safety Report 23243016 (Version 2)
Quarter: 2023Q4

REPORT INFORMATION
  Report Type: Report from Study
  Country: US (occurrence: US)
  Receive Date: 20231130
  Receipt Date: 20231205
  Transmission Date: 20240110
  Serious: Yes (Hospitalization, Other)
  Sender: FDA-Public Use
  Company Number: US-ABBVIE-5516063

PATIENT
  Age: 72 Year
  Sex: Male
  Weight: 111.13 kg

DRUGS (2)
  1. QULIPTA [Suspect]
     Active Substance: ATOGEPANT
     Indication: Headache
     Dates: start: 20230322
  2. QULIPTA [Suspect]
     Active Substance: ATOGEPANT
     Indication: Headache
     Dosage: STRENGTH 10MG
     Route: 048
     Dates: start: 20230322

REACTIONS (3)
  - Patella fracture [Recovering/Resolving]
  - Impaired healing [Recovering/Resolving]
  - Fall [Unknown]

NARRATIVE: CASE EVENT DATE: 20231011
